FAERS Safety Report 5772962-1 (Version None)
Quarter: 2008Q2

REPORT INFORMATION
  Report Type: 
  Country: None (occurrence: None)
  Receive Date: 20080611
  Receipt Date: 20080602
  Transmission Date: 20081010
  Serious: Yes (Disabling)
  Sender: FDA-Public Use
  Company Number: 2008SP001278

PATIENT
  Age: 49 Year
  Sex: Female

DRUGS (6)
  1. XOPENEX HFA [Suspect]
     Indication: ASTHMA
     Dosage: 90 UG;Q 4H; INHALATION
     Route: 055
  2. ALBUTEROL [Suspect]
     Dosage: INHALATION
     Route: 055
  3. ALCOHOL /00002101/ [Suspect]
     Dates: start: 20060201
  4. PROVENTIL /00139501/ [Suspect]
  5. SPIRIVA [Concomitant]
  6. ADVAIR DISKUS 100/50 [Concomitant]

REACTIONS (2)
  - BREATH ALCOHOL TEST POSITIVE [None]
  - IMPRISONMENT [None]
